FAERS Safety Report 9219501 (Version 1)
Quarter: 2013Q1

REPORT INFORMATION
  Report Type: Spontaneous
  Country: US (occurrence: None)
  Receive Date: 20120828
  Receipt Date: 20120828
  Transmission Date: 20140127
  Serious: Yes (Other)
  Sender: FDA-Public Use
  Company Number: 2011BH027192

PATIENT
  Age: 40 Year
  Sex: Female
  Weight: 102.06 kg

DRUGS (8)
  1. KIOVIG LIQUID_10%_SOLUTION FOR INFUSION_VIAL [Suspect]
     Indication: THROMBOCYTOPENIA
     Dosage: 1 IN 1 WK
     Route: 042
     Dates: start: 20110720, end: 20110720
  2. KIOVIG LIQUID_10%_SOLUTION FOR INFUSION_VIAL [Suspect]
     Indication: OFF LABEL USE
     Dosage: 1 IN 1 WK
     Route: 042
     Dates: start: 20110720, end: 20110720
  3. KIOVIG LIQUID_10%_SOLUTION FOR INFUSION_VIAL [Suspect]
     Indication: THROMBOCYTOPENIA
     Dosage: 1 IN 1 WK
     Route: 042
     Dates: start: 20110720, end: 20110720
  4. SYNTHROID [Concomitant]
  5. NASACORT AQ [Concomitant]
  6. PRENATAL VITAMINS [Concomitant]
  7. CALCITRIOL [Concomitant]
  8. CALTRATE [Concomitant]

REACTIONS (2)
  - Haemolytic anaemia [None]
  - Exposure during pregnancy [None]
